FAERS Safety Report 14152919 (Version 2)
Quarter: 2017Q4

REPORT INFORMATION
  Report Type: Spontaneous
  Country: JP (occurrence: JP)
  Receive Date: 20171102
  Receipt Date: 20171211
  Transmission Date: 20180321
  Serious: Yes (Other)
  Sender: FDA-Public Use
  Company Number: JP-PFIZER INC-2017469384

PATIENT
  Age: 77 Year
  Sex: Male
  Weight: 151 kg

DRUGS (7)
  1. AMLODIN [Concomitant]
     Active Substance: AMLODIPINE BESYLATE
     Dosage: 1 MG, TWICE DAILY
     Route: 048
     Dates: start: 20170406
  2. LYRICA [Suspect]
     Active Substance: PREGABALIN
     Indication: NEURALGIA
     Dosage: 300 MG, DAILY
     Route: 048
     Dates: start: 20170821
  3. METHYCOBAL [Concomitant]
     Active Substance: METHYLCOBALAMIN
     Dosage: UNK
     Route: 048
  4. NEXIUM [Concomitant]
     Active Substance: ESOMEPRAZOLE MAGNESIUM
     Dosage: 20 MG, ONCE DAILY
     Route: 048
     Dates: start: 20170406
  5. LYRICA [Suspect]
     Active Substance: PREGABALIN
     Dosage: TWO 75 MG CAPSULES TWICE DAILY IN THE MORNING AND IN THE AFTERNOON
  6. VALSARTAN. [Concomitant]
     Active Substance: VALSARTAN
     Dosage: 80 MG, ONCE DAILY
     Route: 048
     Dates: start: 20170406
  7. PREDONINE [Concomitant]
     Active Substance: PREDNISOLONE
     Dosage: 3 MG, ONCE DAILY
     Route: 048
     Dates: start: 20170406

REACTIONS (4)
  - Condition aggravated [Unknown]
  - Spinal column stenosis [Unknown]
  - Dizziness [Unknown]
  - Gait inability [Recovered/Resolved]

NARRATIVE: CASE EVENT DATE: 20171001
